FAERS Safety Report 6922568-3 (Version None)
Quarter: 2010Q3

REPORT INFORMATION
  Report Type: 
  Country: None (occurrence: None)
  Receive Date: 20100811
  Receipt Date: 20100729
  Transmission Date: 20110219
  Serious: Yes (Other)
  Sender: FDA-Public Use
  Company Number: 016542

PATIENT
  Sex: Female
  Weight: 94.8 kg

DRUGS (10)
  1. CIMZIA [Suspect]
     Indication: RHEUMATOID ARTHRITIS
     Dosage: (200 MG 1X/2 WEEKS SUBCUTANEOUS)
     Route: 058
     Dates: end: 20100501
  2. HYDROCHLOROTHIAZIDE [Concomitant]
  3. PLAQUENIL [Concomitant]
  4. ASPIRIN [Concomitant]
  5. LEXAPRO [Concomitant]
  6. XANAX [Concomitant]
  7. TYLENOL (CAPLET) [Concomitant]
  8. OXYCONTIN [Concomitant]
  9. LYRICA [Concomitant]
  10. IRON [Concomitant]

REACTIONS (1)
  - RHABDOMYOLYSIS [None]
